FAERS Safety Report 4722724-9 (Version None)
Quarter: 2005Q3

REPORT INFORMATION
  Report Type: 
  Country: None (occurrence: None)
  Receive Date: 20050720
  Receipt Date: 20050712
  Transmission Date: 20060218
  Serious: Yes (Hospitalization)
  Sender: FDA-Public Use
  Company Number: SUS1-2005-00545

PATIENT
  Age: 10 Year
  Sex: Male
  Weight: 33.1 kg

DRUGS (4)
  1. ADDERALL XR 25 [Suspect]
     Indication: ATTENTION DEFICIT/HYPERACTIVITY DISORDER
     Dosage: SEE IMAGE
     Route: 048
     Dates: start: 20000101, end: 20050501
  2. ADDERALL XR 25 [Suspect]
     Indication: ATTENTION DEFICIT/HYPERACTIVITY DISORDER
     Dosage: SEE IMAGE
     Route: 048
     Dates: start: 20050501, end: 20050626
  3. SEROQUEL [Concomitant]
  4. PAXIL CR [Concomitant]

REACTIONS (7)
  - DEHYDRATION [None]
  - DIARRHOEA [None]
  - DISORIENTATION [None]
  - DRUG THERAPY CHANGED [None]
  - HEADACHE [None]
  - PRESCRIBED OVERDOSE [None]
  - VOMITING [None]
